FAERS Safety Report 13849948 (Version 2)
Quarter: 2018Q3

REPORT INFORMATION
  Report Type: Spontaneous
  Country: US (occurrence: US)
  Receive Date: 20170809
  Receipt Date: 20180731
  Transmission Date: 20181010
  Serious: No
  Sender: FDA-Public Use
  Company Number: US-BAUSCH-BL-2017-012181

PATIENT
  Age: 58 Year
  Sex: Female

DRUGS (2)
  1. RELISTOR [Suspect]
     Active Substance: METHYLNALTREXONE BROMIDE
     Route: 048
     Dates: start: 20170426
  2. RELISTOR [Suspect]
     Active Substance: METHYLNALTREXONE BROMIDE
     Indication: CONSTIPATION
     Route: 048
     Dates: start: 20170417

REACTIONS (18)
  - Discomfort [Unknown]
  - Treatment noncompliance [Recovered/Resolved]
  - Rhinorrhoea [Unknown]
  - Chills [Unknown]
  - Abdominal pain [Unknown]
  - Hyperhidrosis [Unknown]
  - Drug prescribing error [Unknown]
  - Muscle spasms [Unknown]
  - Erythema [Unknown]
  - Headache [Unknown]
  - Memory impairment [Unknown]
  - Body temperature increased [Unknown]
  - Abdominal distension [Unknown]
  - Vomiting [Recovered/Resolved]
  - Drug ineffective [Not Recovered/Not Resolved]
  - Feeling abnormal [Unknown]
  - Feeling cold [Unknown]
  - Anxiety [Unknown]

NARRATIVE: CASE EVENT DATE: 2017
